FAERS Safety Report 10108755 (Version 3)
Quarter: 2014Q2

REPORT INFORMATION
  Report Type: Spontaneous
  Country: US (occurrence: US)
  Receive Date: 20140425
  Receipt Date: 20140526
  Transmission Date: 20141212
  Serious: Yes (Hospitalization, Other)
  Sender: FDA-Public Use
  Company Number: US-BEH-2014041907

PATIENT
  Sex: Male

DRUGS (1)
  1. ZEMAIRA [Suspect]

REACTIONS (6)
  - Peripheral swelling [Unknown]
  - Elbow operation [Unknown]
  - Pyrexia [Unknown]
  - Dyspnoea [Unknown]
  - Adverse drug reaction [Unknown]
  - Dyspnoea [Unknown]
